FAERS Safety Report 25324357 (Version 1)
Quarter: 2025Q2

REPORT INFORMATION
  Report Type: Spontaneous
  Country: FR (occurrence: FR)
  Receive Date: 20250516
  Receipt Date: 20250516
  Transmission Date: 20250717
  Serious: Yes (Hospitalization)
  Sender: MYLAN
  Company Number: None

PATIENT
  Age: 44 Year
  Sex: Female
  Weight: 98.7 kg

DRUGS (1)
  1. KETOPROFEN [Suspect]
     Active Substance: KETOPROFEN
     Indication: Dental cleaning
     Dosage: 200 MILLIGRAM, QD
     Dates: start: 20250331, end: 20250403

REACTIONS (1)
  - Ulcerative gastritis [Recovering/Resolving]

NARRATIVE: CASE EVENT DATE: 20250404
